FAERS Safety Report 7824904-2 (Version None)
Quarter: 2011Q4

REPORT INFORMATION
  Report Type: 
  Country: None (occurrence: None)
  Receive Date: 20111019
  Receipt Date: 20110318
  Transmission Date: 20120403
  Serious: No
  Sender: FDA-Public Use
  Company Number: US-BRISTOL-MYERS SQUIBB COMPANY-15558752

PATIENT
  Age: 58 Year
  Sex: Female
  Weight: 118 kg

DRUGS (3)
  1. BYSTOLIC [Concomitant]
  2. AVALIDE [Suspect]
     Dosage: 1 DF = 300/25MG
  3. AMLODIPINE [Concomitant]

REACTIONS (4)
  - MUSCULAR WEAKNESS [None]
  - BLOOD PRESSURE INCREASED [None]
  - BACK PAIN [None]
  - PAIN IN EXTREMITY [None]
